FAERS Safety Report 8391945-9 (Version None)
Quarter: 2012Q2

REPORT INFORMATION
  Report Type: 
  Country: None (occurrence: None)
  Receive Date: 20120529
  Receipt Date: 20120522
  Transmission Date: 20120825
  Serious: Yes (Hospitalization)
  Sender: FDA-Public Use
  Company Number: JP-GLAXOSMITHKLINE-B0803861A

PATIENT
  Age: 68 Year
  Sex: Female

DRUGS (2)
  1. VALTREX [Suspect]
     Indication: HERPES ZOSTER
     Dosage: 3000MG PER DAY
     Route: 048
     Dates: start: 20120509, end: 20120512
  2. ERYTHROMYCIN [Concomitant]
     Indication: ATYPICAL MYCOBACTERIAL INFECTION
     Route: 065

REACTIONS (4)
  - DISORIENTATION [None]
  - MENINGITIS [None]
  - NUCHAL RIGIDITY [None]
  - WHITE BLOOD CELL COUNT INCREASED [None]
